FAERS Safety Report 15155815 (Version 1)
Quarter: 2018Q3

REPORT INFORMATION
  Report Type: Spontaneous
  Country: NL (occurrence: NL)
  Receive Date: 20180717
  Receipt Date: 20180717
  Transmission Date: 20181010
  Serious: Yes (Hospitalization)
  Sender: FDA-Public Use
  Company Number: NL-US WORLDMEDS, LLC-STA_00018053

PATIENT
  Age: 63 Year
  Sex: Female
  Weight: 49 kg

DRUGS (7)
  1. LORMETAZEPAM TBL 2MG [Concomitant]
  2. APOMORPHINE HYDROCHLORIDE [Suspect]
     Active Substance: APOMORPHINE HYDROCHLORIDE
     Indication: PARKINSON^S DISEASE
     Dosage: FLOW 0.8ML/HR (=4MG/HR) 16 HRS DAILY, BOLUS 0.3ML (=1.5MG) MAX TWICE DAILY
     Route: 058
     Dates: start: 201504
  3. CLOPIDOGREL TBL 75MG [Concomitant]
  4. SUMATRIPTAN DISP TBL 50MG [Concomitant]
  5. MORPHINE INJFL 10MG/ML AMP 1ML [Concomitant]
  6. CALCIUMCARBONAAT CHEW TBL 1,25G [Concomitant]
  7. REQUIP TBL MGA 18MG [Concomitant]

REACTIONS (2)
  - Faeces hard [Recovering/Resolving]
  - Large intestine perforation [Recovering/Resolving]

NARRATIVE: CASE EVENT DATE: 201606
